APPROVED DRUG PRODUCT: STADOL
Active Ingredient: BUTORPHANOL TARTRATE
Strength: 1MG/SPRAY **Federal Register determination that product was not discontinued or withdrawn for safety or effectiveness reasons**
Dosage Form/Route: SPRAY, METERED;NASAL
Application: N019890 | Product #001
Applicant: BRISTOL MYERS SQUIBB CO PHARMACEUTICAL RESEARCH INSTITUTE
Approved: Dec 12, 1991 | RLD: Yes | RS: No | Type: DISCN